FAERS Safety Report 6984768 (Version 3)
Quarter: 2014Q1

REPORT INFORMATION
  Report Type: Spontaneous
  Country: US (occurrence: US)
  Receive Date: 20090501
  Receipt Date: 20140319
  Transmission Date: 20141002
  Serious: Yes (Other)
  Sender: FDA-Public Use
  Company Number: US-ALEXION-A200700113

PATIENT
  Age: 43 Year
  Sex: Female
  Weight: 67 kg

DRUGS (23)
  1. SOLIRIS [Suspect]
     Dosage: 900 MG, SINGLE
     Route: 042
     Dates: start: 20080218, end: 20080218
  2. SOLIRIS [Suspect]
     Dosage: 600 MG, SINGLE
     Route: 042
     Dates: start: 20080519, end: 20080519
  3. SOLIRIS [Suspect]
     Dosage: 600 MG, SINGLE
     Route: 042
     Dates: start: 20080519, end: 20080519
  4. SOLIRIS [Suspect]
     Dosage: 600 MG, SINGLE
     Route: 042
     Dates: start: 20080526, end: 20080526
  5. SOLIRIS [Suspect]
     Dosage: 600 MG, SINGLE
     Route: 042
     Dates: start: 20080602, end: 20080602
  6. SOLIRIS [Suspect]
     Dosage: 600 MG, SINGLE
     Route: 042
     Dates: start: 20080609, end: 20080609
  7. SOLIRIS [Suspect]
     Dosage: 900 MG, SINGLE
     Route: 042
     Dates: start: 20080616, end: 20080616
  8. SOLIRIS [Suspect]
     Dosage: UNK, SINGLE
     Route: 042
     Dates: start: 20080702, end: 20080702
  9. SOLIRIS [Suspect]
     Dosage: 900 MG, SINGLE
     Route: 042
     Dates: start: 20080709, end: 20080709
  10. SOLIRIS [Suspect]
     Dosage: 900 MG, SINGLE
     Route: 042
     Dates: start: 20080723, end: 20080723
  11. TYLENOL /00020001/ [Concomitant]
     Indication: PROPHYLAXIS
     Dosage: 2 TABS, PRE AND POST-INFUSION
     Route: 048
     Dates: start: 20071128, end: 20080723
  12. TYLENOL /00020001/ [Concomitant]
     Dosage: UNK
     Dates: start: 20071130, end: 20071130
  13. FOLIC ACID [Concomitant]
     Indication: PAROXYSMAL NOCTURNAL HAEMOGLOBINURIA
     Dosage: 2 MG, EVERY MORNING
     Route: 048
  14. FOLIC ACID [Concomitant]
     Dosage: 3 MG, QHS
     Route: 048
  15. ARIXTRA [Concomitant]
     Indication: ANTICOAGULANT THERAPY
     Dosage: 5 MG, 4-5 X WEEKLY
  16. CYCLOSPORINE [Concomitant]
     Indication: PRODUCT USED FOR UNKNOWN INDICATION
     Dosage: 275 MG, Q AM
     Route: 048
  17. CYCLOSPORINE [Concomitant]
     Dosage: 300 MG,EVERY NIGHT
     Route: 048
  18. PROCRIT                            /00909301/ [Concomitant]
     Indication: PRODUCT USED FOR UNKNOWN INDICATION
     Dosage: UNK
     Dates: start: 200712
  19. SOLIRIS [Suspect]
     Indication: PAROXYSMAL NOCTURNAL HAEMOGLOBINURIA
     Dosage: 600 MG, SINGLE
     Route: 042
     Dates: start: 20071128, end: 20071128
  20. SOLIRIS [Suspect]
     Dosage: 600 MG, SINGLE
     Route: 042
     Dates: start: 20071205, end: 20071205
  21. SOLIRIS [Suspect]
     Dosage: 900 MG, SINGLE
     Route: 042
     Dates: start: 20080109, end: 20080109
  22. SOLIRIS [Suspect]
     Dosage: 900 MG, SINGLE
     Route: 042
     Dates: start: 20080123, end: 20080123
  23. SOLIRIS [Suspect]
     Dosage: 900 MG, SINGLE
     Route: 042
     Dates: start: 20080206, end: 20080206

REACTIONS (14)
  - Infusion related reaction [Recovered/Resolved]
  - Blood iron increased [Unknown]
  - Hypersensitivity [Not Recovered/Not Resolved]
  - Migraine [Not Recovered/Not Resolved]
  - Glomerular filtration rate decreased [Not Recovered/Not Resolved]
  - Neck pain [Recovered/Resolved]
  - Muscle spasms [Recovering/Resolving]
  - Chromaturia [Unknown]
  - Fatigue [Not Recovered/Not Resolved]
  - Haemoglobin decreased [Recovered/Resolved]
  - Sinus headache [Recovered/Resolved]
  - Headache [Recovered/Resolved]
  - Pyrexia [Recovered/Resolved]
  - Blood lactate dehydrogenase increased [Unknown]
